FAERS Safety Report 8581872-6 (Version None)
Quarter: 2012Q3

REPORT INFORMATION
  Report Type: 
  Country: None (occurrence: None)
  Receive Date: 20120809
  Receipt Date: 20120731
  Transmission Date: 20120928
  Serious: Yes (Hospitalization, Disabling, Other)
  Sender: FDA-Public Use
  Company Number: US-ASTRAZENECA-2012SE40787

PATIENT
  Age: 39 Year
  Sex: Female
  Weight: 113.4 kg

DRUGS (17)
  1. SEROQUEL [Suspect]
     Route: 048
     Dates: start: 20010101
  2. SEROQUEL [Suspect]
     Indication: ATTENTION DEFICIT/HYPERACTIVITY DISORDER
     Route: 048
  3. SEROQUEL [Suspect]
     Route: 048
     Dates: start: 20010101
  4. SEROQUEL [Suspect]
     Indication: BIPOLAR DISORDER
     Route: 048
  5. SEROQUEL [Suspect]
     Route: 048
     Dates: start: 20010101
  6. TRAMADOL HCL [Concomitant]
  7. SEROQUEL [Suspect]
     Indication: SLEEP DISORDER
     Route: 048
  8. DEPAKOTE ER [Concomitant]
  9. HYDROCODONE BITARTRATE [Concomitant]
     Dosage: 10/3.25 2 TABS THREE TIMES A DAY
  10. SEROQUEL [Suspect]
     Indication: ANXIETY
     Route: 048
  11. SEROQUEL [Suspect]
     Indication: MAJOR DEPRESSION
     Route: 048
  12. SEROQUEL [Suspect]
     Route: 048
     Dates: start: 20010101
  13. BUPROPION HCL [Concomitant]
  14. SEROQUEL [Suspect]
     Route: 048
     Dates: start: 20010101
  15. ZOLOFT [Concomitant]
  16. METHYLTHENID [Concomitant]
  17. LYRICA [Concomitant]

REACTIONS (4)
  - INTENTIONAL DRUG MISUSE [None]
  - ACCIDENT AT WORK [None]
  - ANKLE FRACTURE [None]
  - COMPLEX REGIONAL PAIN SYNDROME [None]
